FAERS Safety Report 19046917 (Version 1)
Quarter: 2021Q1

REPORT INFORMATION
  Report Type: Spontaneous
  Country: CA (occurrence: CA)
  Receive Date: 20210323
  Receipt Date: 20210323
  Transmission Date: 20210420
  Serious: Yes (Other)
  Sender: FDA-Public Use
  Company Number: CA-ASTRAZENECA-2021A162904

PATIENT
  Age: 74 Year
  Sex: Male

DRUGS (1)
  1. OMEPRAZOLE. [Suspect]
     Active Substance: OMEPRAZOLE
     Dosage: 20.0MG UNKNOWN
     Route: 065

REACTIONS (4)
  - Rash [Unknown]
  - Heart rate increased [Unknown]
  - Dyspnoea [Unknown]
  - Product substitution issue [Unknown]
